FAERS Safety Report 6451467-9 (Version None)
Quarter: 2009Q4

REPORT INFORMATION
  Report Type: 
  Country: None (occurrence: None)
  Receive Date: 20091123
  Receipt Date: 20090324
  Transmission Date: 20100525
  Serious: No
  Sender: FDA-Public Use
  Company Number: US-BRISTOL-MYERS SQUIBB COMPANY-14559223

PATIENT
  Age: 54 Year
  Sex: Female
  Weight: 82 kg

DRUGS (2)
  1. AVAPRO [Suspect]
     Indication: HYPERTENSION
     Dosage: DURATION OF THERAPY: 5 YRS AGO
  2. AVALIDE [Suspect]
     Indication: HYPERTENSION
     Dosage: DURATION OF THERAPY: 5 YRS AGO

REACTIONS (1)
  - DRUG INEFFECTIVE [None]
